FAERS Safety Report 10252607 (Version 21)
Quarter: 2017Q2

REPORT INFORMATION
  Report Type: Report from Study
  Country: CA (occurrence: CA)
  Receive Date: 20140623
  Receipt Date: 20170424
  Transmission Date: 20170829
  Serious: Yes (Hospitalization, Other)
  Sender: FDA-Public Use
  Company Number: CA-SA-2014SA020528

PATIENT
  Age: 69 Year
  Sex: Female
  Weight: 113 kg

DRUGS (48)
  1. CELEBREX [Concomitant]
     Active Substance: CELECOXIB
  2. CLONAZEPAM. [Concomitant]
     Active Substance: CLONAZEPAM
     Dates: start: 2009
  3. XGEVA [Concomitant]
     Active Substance: DENOSUMAB
     Dosage: SINGLE-USE VIAL.?FOR S.C. USE ONLY.?PRESERVATIVE-FREE.
     Route: 058
  4. ZADITOR [Concomitant]
     Active Substance: KETOTIFEN FUMARATE
  5. DOCUSATE SODIUM. [Concomitant]
     Active Substance: DOCUSATE SODIUM
     Indication: CONSTIPATION
  6. HERCEPTIN [Suspect]
     Active Substance: TRASTUZUMAB
     Indication: BREAST CANCER METASTATIC
     Dosage: DOSAGE-UNKNOWN DOSE (21DEC09)/896 MG (23AUG-2013)
     Route: 042
     Dates: start: 20091201
  7. DEXAMETHASONE. [Concomitant]
     Active Substance: DEXAMETHASONE
     Route: 048
  8. VITAMIN D [Concomitant]
     Active Substance: CHOLECALCIFEROL
     Dates: start: 201309
  9. AVALIDE [Concomitant]
     Active Substance: HYDROCHLOROTHIAZIDE\IRBESARTAN
     Indication: HYPERTENSION
     Dosage: 300/25
     Route: 048
  10. PERJETA [Suspect]
     Active Substance: PERTUZUMAB
     Indication: HER-2 POSITIVE BREAST CANCER
     Route: 065
     Dates: start: 20130821
  11. ZESTORETIC [Concomitant]
     Active Substance: HYDROCHLOROTHIAZIDE\LISINOPRIL
     Dosage: 20 YEARS AGO
     Dates: start: 1995
  12. ZESTORETIC [Concomitant]
     Active Substance: HYDROCHLOROTHIAZIDE\LISINOPRIL
     Route: 048
  13. CALCIUM [Concomitant]
     Active Substance: CALCIUM
     Dates: start: 201309
  14. TAXOL [Concomitant]
     Active Substance: PACLITAXEL
     Dosage: FORM: SOLUTION INTRAVENOUS
     Dates: end: 201006
  15. ZESTORETIC [Concomitant]
     Active Substance: HYDROCHLOROTHIAZIDE\LISINOPRIL
     Dosage: 20 YEARS AGO NOS
  16. PERJETA [Suspect]
     Active Substance: PERTUZUMAB
     Indication: HER-2 POSITIVE BREAST CANCER
     Route: 042
     Dates: end: 20140925
  17. HERCEPTIN [Suspect]
     Active Substance: TRASTUZUMAB
     Indication: BREAST CANCER METASTATIC
     Route: 042
     Dates: start: 20130823
  18. PAXIL [Concomitant]
     Active Substance: PAROXETINE HYDROCHLORIDE
     Route: 048
  19. ROSUVASTATIN CALCIUM. [Concomitant]
     Active Substance: ROSUVASTATIN CALCIUM
     Dosage: STARTED 10 YEARS AGO NOS
  20. EFFEXOR [Concomitant]
     Active Substance: VENLAFAXINE HYDROCHLORIDE
  21. PANTOLOC [Concomitant]
     Active Substance: PANTOPRAZOLE SODIUM
     Indication: GASTROOESOPHAGEAL REFLUX DISEASE
     Dates: start: 2013
  22. CRESTOR [Concomitant]
     Active Substance: ROSUVASTATIN CALCIUM
     Dosage: TREATMENT START DATE:: SINCE 10 YEARS AGO
     Dates: start: 2005
  23. PRESERVISION [Concomitant]
     Active Substance: MINERALS\VITAMINS
     Indication: MACULAR DEGENERATION
     Dosage: STARTED 5 YEARS AGO
  24. TRASTUZUMAB [Suspect]
     Active Substance: TRASTUZUMAB
     Indication: METASTATIC GASTRIC CANCER
     Route: 042
     Dates: start: 20150107
  25. TRASTUZUMAB [Suspect]
     Active Substance: TRASTUZUMAB
     Indication: METASTATIC GASTRIC CANCER
     Route: 042
     Dates: start: 20150107
  26. VITAMIN C [Concomitant]
     Active Substance: ASCORBIC ACID
     Dosage: TREATMENT START DATE: SINCE 20 YEARS AGO
  27. INNOHEP [Concomitant]
     Active Substance: TINZAPARIN SODIUM
  28. FOLINIC ACID [Concomitant]
     Active Substance: LEUCOVORIN
     Dosage: 12 SESSIONS
     Dates: start: 201211, end: 201304
  29. TAXOTERE [Suspect]
     Active Substance: DOCETAXEL
     Indication: BREAST CANCER METASTATIC
     Route: 042
     Dates: start: 20130913
  30. TAXOTERE [Suspect]
     Active Substance: DOCETAXEL
     Indication: BREAST CANCER METASTATIC
     Route: 065
     Dates: start: 201208, end: 201210
  31. KADCYLA [Suspect]
     Active Substance: ADO-TRASTUZUMAB EMTANSINE
     Indication: HER-2 POSITIVE BREAST CANCER
     Route: 042
     Dates: start: 20141022
  32. CARVEDILOL. [Suspect]
     Active Substance: CARVEDILOL
     Indication: HYPERTENSION
     Route: 065
  33. DECADRON [Concomitant]
     Active Substance: DEXAMETHASONE
     Dates: start: 201309
  34. VITAMIN B [Concomitant]
     Active Substance: VITAMIN B
     Dosage: TREATMENT START DATE: SINCE 10 YEARS AGO
     Dates: start: 2005
  35. PRESERVISION [Concomitant]
     Active Substance: MINERALS\VITAMINS
     Indication: MACULAR DEGENERATION
     Dosage: TREATMENT START DATE: SINCE 5 YEARS AGO
  36. DILAUDID [Concomitant]
     Active Substance: HYDROMORPHONE HYDROCHLORIDE
     Indication: PAIN
  37. HYDROCORTISONE SODIUM SUCCINATE [Concomitant]
     Active Substance: HYDROCORTISONE SODIUM SUCCINATE
     Route: 042
     Dates: start: 20110209, end: 20141126
  38. CLONAZEPAM. [Concomitant]
     Active Substance: CLONAZEPAM
     Route: 048
  39. PANTOPRAZOLE SODIUM. [Concomitant]
     Active Substance: PANTOPRAZOLE SODIUM
     Indication: GASTROOESOPHAGEAL REFLUX DISEASE
     Route: 048
     Dates: start: 2013
  40. FLUOROURACIL. [Concomitant]
     Active Substance: FLUOROURACIL
     Dates: start: 201211, end: 201304
  41. PAROXETINE HYDROCHLORIDE. [Concomitant]
     Active Substance: PAROXETINE HYDROCHLORIDE
     Route: 048
  42. DECADRON [Concomitant]
     Active Substance: DEXAMETHASONE
     Dates: start: 201309
  43. TAXOTERE [Suspect]
     Active Substance: DOCETAXEL
     Indication: BREAST CANCER METASTATIC
     Route: 042
  44. XELODA [Suspect]
     Active Substance: CAPECITABINE
     Indication: CARDIAC DISORDER
     Route: 048
     Dates: start: 201208, end: 201210
  45. PAXIL [Concomitant]
     Active Substance: PAROXETINE HYDROCHLORIDE
     Route: 048
     Dates: start: 2009
  46. SENOKOT [Concomitant]
     Active Substance: SENNOSIDES
     Indication: CONSTIPATION
  47. OXALIPLATIN. [Concomitant]
     Active Substance: OXALIPLATIN
     Dates: start: 201211, end: 201304
  48. CLONAZEPAM. [Concomitant]
     Active Substance: CLONAZEPAM
     Route: 048

REACTIONS (69)
  - Fracture [Not Recovered/Not Resolved]
  - Gingival operation [Recovered/Resolved]
  - Headache [Unknown]
  - Hypertension [Unknown]
  - Dermatitis [Recovered/Resolved]
  - Viral upper respiratory tract infection [Recovered/Resolved]
  - Epistaxis [Unknown]
  - Malaise [Not Recovered/Not Resolved]
  - Alanine aminotransferase increased [Unknown]
  - Haemoglobin decreased [Not Recovered/Not Resolved]
  - Needle issue [Unknown]
  - Pyrexia [Recovered/Resolved]
  - Aspartate aminotransferase increased [Recovered/Resolved]
  - Mean cell haemoglobin concentration decreased [Unknown]
  - Monocyte count increased [Unknown]
  - Red blood cell count decreased [Not Recovered/Not Resolved]
  - Peripheral swelling [Not Recovered/Not Resolved]
  - Muscle spasms [Unknown]
  - Poor venous access [Recovered/Resolved]
  - Dry skin [Not Recovered/Not Resolved]
  - Unevaluable event [Not Recovered/Not Resolved]
  - Chest pain [Recovered/Resolved]
  - Gingivitis [Unknown]
  - Urinary tract infection [Unknown]
  - Carbohydrate antigen 125 increased [Unknown]
  - Hyperlipidaemia [Not Recovered/Not Resolved]
  - Pleural effusion [Unknown]
  - Fungal infection [Unknown]
  - Paraesthesia [Not Recovered/Not Resolved]
  - Rhinorrhoea [Recovered/Resolved]
  - Tooth extraction [Unknown]
  - Blood test abnormal [Unknown]
  - Blood bicarbonate decreased [Unknown]
  - Bone disorder [Not Recovered/Not Resolved]
  - Carbohydrate antigen 15-3 increased [Not Recovered/Not Resolved]
  - Haematocrit decreased [Unknown]
  - Platelet count decreased [Not Recovered/Not Resolved]
  - Red cell distribution width increased [Not Recovered/Not Resolved]
  - Tooth fracture [Unknown]
  - Face oedema [Not Recovered/Not Resolved]
  - Tumour marker increased [Not Recovered/Not Resolved]
  - Weight decreased [Not Recovered/Not Resolved]
  - Hypoaesthesia [Not Recovered/Not Resolved]
  - Pruritus [Not Recovered/Not Resolved]
  - Bone pain [Recovered/Resolved]
  - Cough [Not Recovered/Not Resolved]
  - Blood calcium increased [Recovering/Resolving]
  - Blood glucose increased [Unknown]
  - Mean cell volume increased [Not Recovered/Not Resolved]
  - Fatigue [Unknown]
  - Pain in extremity [Unknown]
  - Dysgeusia [Unknown]
  - Myalgia [Unknown]
  - Carcinoembryonic antigen increased [Not Recovered/Not Resolved]
  - Haemolysis [Unknown]
  - Lymphocyte count decreased [Unknown]
  - White blood cell count decreased [Unknown]
  - Dyspnoea [Not Recovered/Not Resolved]
  - Diarrhoea [Not Recovered/Not Resolved]
  - Gingival swelling [Unknown]
  - Dry mouth [Unknown]
  - Tooth disorder [Unknown]
  - Blood lactate dehydrogenase increased [Not Recovered/Not Resolved]
  - Liver disorder [Not Recovered/Not Resolved]
  - Malaise [Not Recovered/Not Resolved]
  - Drug ineffective [Unknown]
  - Rectal haemorrhage [Unknown]
  - Blood alkaline phosphatase increased [Not Recovered/Not Resolved]
  - Pain [Unknown]

NARRATIVE: CASE EVENT DATE: 201312
